FAERS Safety Report 8263308-8 (Version None)
Quarter: 2012Q2

REPORT INFORMATION
  Report Type: 
  Country: None (occurrence: None)
  Receive Date: 20120405
  Receipt Date: 20120328
  Transmission Date: 20120825
  Serious: Yes (Hospitalization, Congenital Anomaly)
  Sender: FDA-Public Use
  Company Number: US-FRI-1000028145

PATIENT
  Sex: Male

DRUGS (5)
  1. IRON [Concomitant]
  2. PEPCID [Concomitant]
  3. LEXAPRO [Suspect]
     Indication: DEPRESSION
     Route: 064
     Dates: start: 20070429, end: 20080114
  4. VITAMIN AND MINERAL PRENATAL SUPPLEMENT W/ FOLIC ACID CAP [Concomitant]
  5. COLACE [Concomitant]

REACTIONS (8)
  - PULMONARY VALVE STENOSIS [None]
  - PLEURAL EFFUSION [None]
  - CONGENITAL TRICUSPID VALVE ATRESIA [None]
  - TRANSPOSITION OF THE GREAT VESSELS [None]
  - URINARY TRACT INFECTION [None]
  - PNEUMOTHORAX [None]
  - VENTRICULAR SEPTAL DEFECT [None]
  - SUBDURAL HAEMORRHAGE [None]
